FAERS Safety Report 7585079-0 (Version None)
Quarter: 2011Q2

REPORT INFORMATION
  Report Type: 
  Country: None (occurrence: None)
  Receive Date: 20110630
  Receipt Date: 20110622
  Transmission Date: 20111010
  Serious: Yes (Other)
  Sender: FDA-Public Use
  Company Number: JP-BRISTOL-MYERS SQUIBB COMPANY-15863053

PATIENT
  Sex: Female

DRUGS (2)
  1. TAXOL [Suspect]
  2. TRASTUZUMAB [Suspect]
     Indication: BREAST CANCER

REACTIONS (3)
  - OLIGOHYDRAMNIOS [None]
  - LIVE BIRTH [None]
  - PREGNANCY [None]
